FAERS Safety Report 7617029-2 (Version None)
Quarter: 2011Q3

REPORT INFORMATION
  Report Type: 
  Country: None (occurrence: None)
  Receive Date: 20110718
  Receipt Date: 20090822
  Transmission Date: 20111222
  Serious: Yes (Hospitalization, Other)
  Sender: FDA-Public Use
  Company Number: US-BAYER-200930700NA

PATIENT
  Age: 32 Year
  Sex: Male
  Weight: 99.773 kg

DRUGS (20)
  1. INSULIN [Concomitant]
     Dosage: UNK
     Dates: start: 20070907
  2. PANCURONIUM [Concomitant]
     Dosage: UNK
     Dates: start: 20070907
  3. CEFAZOLIN [Concomitant]
     Dosage: UNK
     Dates: start: 20070907
  4. ALBUMIN (HUMAN) [Concomitant]
     Dosage: UNK
     Dates: start: 20070907
  5. EPINEPHRINE [Concomitant]
     Dosage: UNK
     Dates: start: 20070907
  6. HEPARIN [Concomitant]
     Dosage: 5000 U, TID
     Route: 058
  7. VANCOMYCIN [Concomitant]
     Dosage: 1000 MG, UNK
     Dates: start: 20070907
  8. PREDNISONE [Concomitant]
     Dosage: 20 MG, TAKE THREE TABLETS EVERY 8 HOURS
  9. TRASYLOL [Suspect]
     Indication: PRODUCT USED FOR UNKNOWN INDICATION
     Dosage: 200 CC, LOADING DOSE
     Route: 042
     Dates: start: 20070907, end: 20070907
  10. TOPROL-XL [Concomitant]
     Dosage: 25 MG, BID
  11. COUMADIN [Concomitant]
  12. ACETYLSALICYLIC ACID SRT [Concomitant]
     Dosage: 325 MG, QD
  13. SUCCINYLCHOLINE CHLORIDE [Concomitant]
     Dosage: UNK
     Dates: start: 20070907
  14. VANCOMYCIN [Concomitant]
  15. HEPARIN [Concomitant]
     Dosage: UNK
     Dates: start: 20070907
  16. CEFAZOLIN [Concomitant]
  17. PROTAMINE SULFATE [Concomitant]
     Dosage: UNK
     Dates: start: 20070907
  18. PROPOFOL [Concomitant]
     Dosage: UNK
     Dates: start: 20070907
  19. FENTANYL-100 [Concomitant]
     Dosage: UNK
     Dates: start: 20070907
  20. MIDAZOLAM HCL [Concomitant]
     Dosage: UNK
     Dates: start: 20070907

REACTIONS (11)
  - RENAL FAILURE [None]
  - COMA [None]
  - UNEVALUABLE EVENT [None]
  - INJURY [None]
  - FEAR [None]
  - ANXIETY [None]
  - RENAL IMPAIRMENT [None]
  - RENAL INJURY [None]
  - STRESS [None]
  - PAIN [None]
  - EMOTIONAL DISTRESS [None]
